FAERS Safety Report 6521869-0 (Version None)
Quarter: 2009Q4

REPORT INFORMATION
  Report Type: 
  Country: None (occurrence: None)
  Receive Date: 20091224
  Receipt Date: 20091210
  Transmission Date: 20100525
  Serious: Yes (Other)
  Sender: FDA-Public Use
  Company Number: AUR-APL-2009-01583

PATIENT
  Age: 61 Year
  Sex: Female
  Weight: 117.9352 kg

DRUGS (6)
  1. HYDROCHLOROTHIAZIDE [Suspect]
     Indication: BLOOD PRESSURE
  2. METOPROLOL [Suspect]
     Indication: BLOOD PRESSURE
     Dosage: 12.5 MG
  3. CHANTIX [Suspect]
     Indication: SMOKING CESSATION THERAPY
  4. PROZAC [Concomitant]
  5. LAMICTAL [Concomitant]
  6. ALLEGRA [Concomitant]

REACTIONS (3)
  - ABNORMAL DREAMS [None]
  - BLOOD PRESSURE INCREASED [None]
  - HEART RATE DECREASED [None]
